FAERS Safety Report 4362310-6 (Version None)
Quarter: 2004Q2

REPORT INFORMATION
  Report Type: 
  Country: None (occurrence: None)
  Receive Date: 20040517
  Receipt Date: 20040506
  Transmission Date: 20050107
  Serious: Yes (Hospitalization)
  Sender: FDA-Public Use
  Company Number: 04P-167-0260083-00

PATIENT
  Sex: Female

DRUGS (3)
  1. BIAXIN [Suspect]
     Dosage: 1 TABLET, 2 IN 1 D, PER ORAL
     Route: 048
  2. RIFAMPICIN [Concomitant]
  3. ETHAMBUTOL HCL [Concomitant]

REACTIONS (2)
  - DYSPNOEA [None]
  - PALPITATIONS [None]
